FAERS Safety Report 24351978 (Version 1)
Quarter: 2024Q3

REPORT INFORMATION
  Report Type: Spontaneous
  Country: FR (occurrence: FR)
  Receive Date: 20240923
  Receipt Date: 20240923
  Transmission Date: 20241016
  Serious: Yes (Death, Hospitalization)
  Sender: FRESENIUS KABI
  Company Number: FR-ROCHE-10000018779

PATIENT
  Age: 64 Year
  Sex: Male
  Weight: 60 kg

DRUGS (20)
  1. OXALIPLATIN [Suspect]
     Active Substance: OXALIPLATIN
     Indication: Colorectal cancer metastatic
     Dates: start: 20240403, end: 20240809
  2. OXALIPLATIN [Suspect]
     Active Substance: OXALIPLATIN
     Dosage: ROUTE OF ADMIN: UNKNOWN
  3. CAPECITABINE [Suspect]
     Active Substance: CAPECITABINE
     Indication: Colorectal cancer metastatic
     Dates: start: 20240503, end: 20240809
  4. CAPECITABINE [Suspect]
     Active Substance: CAPECITABINE
  5. ATEZOLIZUMAB [Suspect]
     Active Substance: ATEZOLIZUMAB
     Indication: Colorectal cancer metastatic
     Dates: start: 20240403
  6. ATEZOLIZUMAB [Suspect]
     Active Substance: ATEZOLIZUMAB
     Route: 065
     Dates: start: 20240403, end: 20240809
  7. DEVICE\YTTRIUM Y-90 [Suspect]
     Active Substance: DEVICE\YTTRIUM Y-90
     Indication: Colorectal cancer metastatic
     Dates: start: 20240610
  8. DEVICE\YTTRIUM Y-90 [Suspect]
     Active Substance: DEVICE\YTTRIUM Y-90
  9. BEVACIZUMAB [Suspect]
     Active Substance: BEVACIZUMAB
     Indication: Colorectal cancer metastatic
     Route: 065
     Dates: start: 20240628, end: 20240809
  10. INNOHEP [Concomitant]
     Active Substance: TINZAPARIN SODIUM
     Indication: Product used for unknown indication
     Dates: start: 20240521
  11. HYDROMORPHONE HYDROCHLORIDE [Concomitant]
     Active Substance: HYDROMORPHONE HYDROCHLORIDE
     Indication: Product used for unknown indication
     Dosage: BID
  12. HYDROMORPHONE HYDROCHLORIDE [Concomitant]
     Active Substance: HYDROMORPHONE HYDROCHLORIDE
     Dosage: BID
  13. HYDROMORPHONE HYDROCHLORIDE [Concomitant]
     Active Substance: HYDROMORPHONE HYDROCHLORIDE
  14. DOLIPRANE [Concomitant]
     Active Substance: ACETAMINOPHEN
     Indication: Product used for unknown indication
  15. DOLIPRANE [Concomitant]
     Active Substance: ACETAMINOPHEN
  16. FONDAPARINUX [Concomitant]
     Active Substance: FONDAPARINUX
     Indication: Product used for unknown indication
  17. FONDAPARINUX [Concomitant]
     Active Substance: FONDAPARINUX
  18. ESOMEPRAZOLE [Concomitant]
     Active Substance: ESOMEPRAZOLE
     Indication: Product used for unknown indication
     Dosage: BID
  19. ESOMEPRAZOLE [Concomitant]
     Active Substance: ESOMEPRAZOLE
     Dosage: BID
  20. ESOMEPRAZOLE [Concomitant]
     Active Substance: ESOMEPRAZOLE

REACTIONS (3)
  - Tumour fistulisation [Fatal]
  - Tumour perforation [Fatal]
  - Device related bacteraemia [Recovering/Resolving]

NARRATIVE: CASE EVENT DATE: 20240817
